FAERS Safety Report 19904165 (Version 1)
Quarter: 2021Q3

REPORT INFORMATION
  Report Type: Spontaneous
  Country: ES (occurrence: ES)
  Receive Date: 20210930
  Receipt Date: 20210930
  Transmission Date: 20211014
  Serious: Yes (Other)
  Sender: FDA-Public Use
  Company Number: ES-TEVA-2021-ES-1959668

PATIENT
  Age: 76 Year
  Sex: Female

DRUGS (1)
  1. AMOXICILINA/ACIDO CLAVULANICO 875 MG/125 MG COMPRIMIDO [Suspect]
     Active Substance: AMOXICILLIN\CLAVULANATE POTASSIUM
     Indication: CELLULITIS
     Dosage: 3 DOSAGE FORMS DAILY; 1?1?1
     Route: 048
     Dates: start: 20210405, end: 20210410

REACTIONS (2)
  - Rash maculo-papular [Recovered/Resolved]
  - Hepatitis [Recovered/Resolved]

NARRATIVE: CASE EVENT DATE: 20210410
